FAERS Safety Report 6626129-5 (Version None)
Quarter: 2010Q1

REPORT INFORMATION
  Report Type: 
  Country: None (occurrence: None)
  Receive Date: 20100310
  Receipt Date: 20100304
  Transmission Date: 20100710
  Serious: Yes (Other)
  Sender: FDA-Public Use
  Company Number: B0638854A

PATIENT
  Age: 27 Year
  Sex: Female

DRUGS (4)
  1. FORTUM [Suspect]
     Indication: DRUG USE FOR UNKNOWN INDICATION
     Route: 042
     Dates: start: 20100201, end: 20100201
  2. MAGNESIUM SULFATE [Concomitant]
     Route: 065
  3. FERRUM [Concomitant]
     Route: 065
  4. FOLIC ACID [Concomitant]
     Route: 065

REACTIONS (2)
  - DRUG EXPOSURE DURING PREGNANCY [None]
  - RASH PRURITIC [None]
